FAERS Safety Report 23298884 (Version 2)
Quarter: 2024Q2

REPORT INFORMATION
  Report Type: Spontaneous
  Country: US (occurrence: US)
  Receive Date: 20231215
  Receipt Date: 20240402
  Transmission Date: 20240715
  Serious: Yes (Other)
  Sender: FDA-Public Use
  Company Number: US-ABBVIE-5538848

PATIENT
  Age: 74 Year
  Sex: Female
  Weight: 69.853 kg

DRUGS (4)
  1. HUMIRA [Suspect]
     Active Substance: ADALIMUMAB
     Indication: Product used for unknown indication
     Route: 058
     Dates: start: 202104, end: 202204
  2. ENBREL [Suspect]
     Active Substance: ETANERCEPT
     Indication: Rheumatoid arthritis
     Route: 058
     Dates: start: 2022
  3. ENBREL [Suspect]
     Active Substance: ETANERCEPT
     Indication: Rheumatoid arthritis
     Route: 058
     Dates: start: 2014, end: 2021
  4. ATENOLOL [Concomitant]
     Active Substance: ATENOLOL
     Indication: Product used for unknown indication

REACTIONS (15)
  - Cutaneous T-cell lymphoma [Unknown]
  - Osteoarthritis [Unknown]
  - Rash [Unknown]
  - Malignant melanoma [Unknown]
  - Device difficult to use [Unknown]
  - Non-Hodgkin^s lymphoma [Unknown]
  - Rheumatoid arthritis [Unknown]
  - Rash [Unknown]
  - Injection site rash [Unknown]
  - Osteoporosis [Unknown]
  - Joint range of motion decreased [Unknown]
  - Retinal vein thrombosis [Unknown]
  - Joint stiffness [Unknown]
  - Joint effusion [Unknown]
  - Hand deformity [Unknown]

NARRATIVE: CASE EVENT DATE: 20210101
